FAERS Safety Report 9175030 (Version 1)
Quarter: 2013Q1

REPORT INFORMATION
  Report Type: Report from Study
  Country: HU (occurrence: HU)
  Receive Date: 20130320
  Receipt Date: 20130320
  Transmission Date: 20140127
  Serious: Yes (Life-Threatening, Hospitalization)
  Sender: FDA-Public Use
  Company Number: HU-GLAXOSMITHKLINE-B0876184A

PATIENT
  Sex: Male

DRUGS (3)
  1. UNKNOWN [Concomitant]
  2. REMERON [Concomitant]
  3. SERETIDE [Suspect]
     Indication: ASTHMA
     Dosage: 1PUFF TWICE PER DAY
     Route: 055
     Dates: start: 201211

REACTIONS (2)
  - Coma [Recovered/Resolved]
  - Dyspnoea [Recovered/Resolved]
